FAERS Safety Report 15686844 (Version 1)
Quarter: 2018Q4

REPORT INFORMATION
  Report Type: Spontaneous
  Country: US (occurrence: US)
  Receive Date: 20181204
  Receipt Date: 20181204
  Transmission Date: 20190205
  Serious: No
  Sender: FDA-Public Use
  Company Number: US-PFIZER INC-2018152933

PATIENT
  Age: 15 Year
  Sex: Male
  Weight: 63.49 kg

DRUGS (1)
  1. GENOTROPIN [Suspect]
     Active Substance: SOMATROPIN
     Indication: HYPOPITUITARISM
     Dosage: 2.4 MG, DAILY (ONCE PER NIGHT EVERYDAY), (ONCE NIGHTLY)
     Dates: start: 201701

REACTIONS (2)
  - Insulin-like growth factor increased [Unknown]
  - Product dose omission [Unknown]

NARRATIVE: CASE EVENT DATE: 20180411
